FAERS Safety Report 5586116-5 (Version None)
Quarter: 2007Q4

REPORT INFORMATION
  Report Type: 
  Country: None (occurrence: None)
  Receive Date: 20071205
  Receipt Date: 20071011
  Transmission Date: 20080405
  Serious: Yes (Other)
  Sender: FDA-Public Use
  Company Number: US-WYE-H00648807

PATIENT
  Sex: Female

DRUGS (1)
  1. EFFEXOR XR [Suspect]
     Indication: DEPRESSION
     Dosage: 150 MG 3 X PER 1 DAY, ORAL
     Route: 047

REACTIONS (2)
  - DEMENTIA [None]
  - DRUG WITHDRAWAL SYNDROME [None]
